FAERS Safety Report 5452636-7 (Version None)
Quarter: 2007Q3

REPORT INFORMATION
  Report Type: 
  Country: None (occurrence: None)
  Receive Date: 20070914
  Receipt Date: 20070910
  Transmission Date: 20080115
  Serious: Yes (Other)
  Sender: FDA-Public Use
  Company Number: JP-BRISTOL-MYERS SQUIBB COMPANY-13906185

PATIENT
  Age: 65 Year
  Sex: Male

DRUGS (7)
  1. PARAPLATIN [Suspect]
     Indication: TONGUE NEOPLASM MALIGNANT STAGE UNSPECIFIED
     Route: 013
  2. UFT [Suspect]
     Indication: TONGUE NEOPLASM MALIGNANT STAGE UNSPECIFIED
     Route: 048
  3. RADIOTHERAPY [Suspect]
     Indication: TONGUE NEOPLASM MALIGNANT STAGE UNSPECIFIED
     Dosage: THERAPY 2 TIMES/DAY, 5 DAYS/WEEK TO A TOTAL DOSE OF 33 GY.
  4. PENTAZOCINE LACTATE [Concomitant]
     Route: 030
  5. ATARAX [Concomitant]
     Route: 030
  6. KYTRIL [Concomitant]
     Route: 041
  7. SOLU-MEDROL [Concomitant]
     Route: 013

REACTIONS (1)
  - STOMATITIS [None]
